FAERS Safety Report 6159929-9 (Version None)
Quarter: 2009Q2

REPORT INFORMATION
  Report Type: 
  Country: None (occurrence: None)
  Receive Date: 20090415
  Receipt Date: 20090331
  Transmission Date: 20091009
  Serious: Yes (Other)
  Sender: FDA-Public Use
  Company Number: 2009S1005764

PATIENT
  Age: 52 Year
  Sex: Female

DRUGS (1)
  1. TAMOXIFEN CITRATE [Suspect]
     Indication: BREAST CANCER STAGE I
     Dosage: 20 MG;DAILY;ORAL
     Route: 048
     Dates: start: 19920301, end: 19930301

REACTIONS (5)
  - EYE PAIN [None]
  - OCULAR TOXICITY [None]
  - OPTIC NEURITIS [None]
  - PAPILLOEDEMA [None]
  - VISUAL ACUITY REDUCED [None]
